FAERS Safety Report 4682974-7 (Version None)
Quarter: 2005Q2

REPORT INFORMATION
  Report Type: 
  Country: None (occurrence: None)
  Receive Date: 20050602
  Receipt Date: 20050207
  Transmission Date: 20051028
  Serious: No
  Sender: FDA-Public Use
  Company Number: USA050290108

PATIENT
  Age: 56 Year
  Sex: Female

DRUGS (5)
  1. CYMBALTA [Suspect]
     Indication: DEPRESSION
     Dosage: 60 MG DAY
     Dates: start: 20050101
  2. ZYPREXA [Concomitant]
  3. VALIUM [Concomitant]
  4. XANAX (ALPRAZOLAM DUM) [Concomitant]
  5. AMITRIPTYLINE W/ PERPHENAZINE [Concomitant]

REACTIONS (3)
  - DRUG INEFFECTIVE [None]
  - PANIC DISORDER [None]
  - STOMACH DISCOMFORT [None]
